FAERS Safety Report 25336152 (Version 1)
Quarter: 2025Q2

REPORT INFORMATION
  Report Type: Report from Study
  Country: US (occurrence: US)
  Receive Date: 20250520
  Receipt Date: 20250520
  Transmission Date: 20250717
  Serious: Yes (Disabling, Other)
  Sender: TAKEDA
  Company Number: US-TAKEDA-2025TUS046658

PATIENT
  Age: 36 Year
  Sex: Female

DRUGS (1)
  1. HUMAN IMMUNOGLOBULIN G [Suspect]
     Active Substance: HUMAN IMMUNOGLOBULIN G
     Indication: IgG deficiency
     Dosage: 1 GRAM, 1/WEEK
     Dates: start: 20250325, end: 20250325

REACTIONS (6)
  - Mental impairment [Recovering/Resolving]
  - Hypersomnia [Recovering/Resolving]
  - Neck pain [Recovering/Resolving]
  - Cognitive disorder [Recovering/Resolving]
  - Photosensitivity reaction [Recovering/Resolving]
  - Vomiting [Recovering/Resolving]

NARRATIVE: CASE EVENT DATE: 20250325
